FAERS Safety Report 13114744 (Version 1)
Quarter: 2017Q1

REPORT INFORMATION
  Report Type: Spontaneous
  Country: US (occurrence: US)
  Receive Date: 20170113
  Receipt Date: 20170113
  Transmission Date: 20170428
  Serious: No
  Sender: FDA-Public Use
  Company Number: US-ASTRAZENECA-2017SE01637

PATIENT
  Sex: Female

DRUGS (19)
  1. PRINIVIL [Suspect]
     Active Substance: LISINOPRIL
     Route: 048
  2. CRESTOR [Suspect]
     Active Substance: ROSUVASTATIN CALCIUM
     Route: 048
  3. FREESTYLE LITE [Concomitant]
     Indication: DIABETES MELLITUS
     Dosage: 4 TIMES A DAY
  4. VENTOLIN [Concomitant]
     Active Substance: ALBUTEROL SULFATE
     Indication: COUGH
     Dosage: 3 ML EVERY 4 TO 6 HOURS AS NEEDED
     Route: 055
  5. VENTOLIN [Concomitant]
     Active Substance: ALBUTEROL SULFATE
     Indication: WHEEZING
     Dosage: 3 ML EVERY 4 TO 6 HOURS AS NEEDED
     Route: 055
  6. LYRICA [Concomitant]
     Active Substance: PREGABALIN
     Dosage: TAKE 1 CAP BY MOUTH TWICE A DAY
     Route: 048
  7. ASPIRIN. [Concomitant]
     Active Substance: ASPIRIN
     Dosage: CHEW 1 TABLET DAILY
     Route: 048
  8. ALBUTEROL SULFATE. [Concomitant]
     Active Substance: ALBUTEROL SULFATE
     Indication: WHEEZING
     Dosage: 2 PUFFS EVERY 4 HOURS AS NEEDED
     Route: 055
  9. JANUMET [Concomitant]
     Active Substance: METFORMIN HYDROCHLORIDE\SITAGLIPTIN PHOSPHATE
     Dosage: 50-500 MG. TAKE 1 TABLET BY MOUTH TWICE A DAY
     Route: 048
  10. FULL KIT NEBULIZER SET [Concomitant]
     Indication: EMPHYSEMA
     Dosage: 1 UNIT AS DIRECTED
  11. AMARYL [Concomitant]
     Active Substance: GLIMEPIRIDE
     Route: 048
  12. ALBUTEROL SULFATE. [Concomitant]
     Active Substance: ALBUTEROL SULFATE
     Indication: BREATH ODOUR
     Dosage: 2 PUFFS EVERY 4 HOURS AS NEEDED
     Route: 055
  13. ONE TOUCH ULTRASMART LANCETS [Concomitant]
     Indication: DIABETES MELLITUS
     Dosage: 4 TIMES A DAY
  14. MOBIC [Concomitant]
     Active Substance: MELOXICAM
     Route: 048
  15. LANTUS [Concomitant]
     Active Substance: INSULIN GLARGINE
     Dosage: 40 UNITS AT BEDTIME AND 14 UNITS IN AM. INCREASE BY 4 UNITS DAILY.
     Route: 058
  16. INSULIN PEN [Concomitant]
     Active Substance: INSULIN NOS
     Dosage: 1 UNIT TWICE A DAY, USE AS DIRECTED
  17. ALBUTEROL SULFATE. [Concomitant]
     Active Substance: ALBUTEROL SULFATE
     Indication: COUGH
     Dosage: 2 PUFFS EVERY 4 HOURS AS NEEDED
     Route: 055
  18. FISH OIL [Concomitant]
     Active Substance: FISH OIL
     Dosage: TAKE 1000 MG BY MOUTH TWICE DAILY.
     Route: 048
  19. VENTOLIN [Concomitant]
     Active Substance: ALBUTEROL SULFATE
     Indication: DYSPNOEA
     Dosage: 3 ML EVERY 4 TO 6 HOURS AS NEEDED
     Route: 055

REACTIONS (12)
  - Rhinitis allergic [Recovered/Resolved]
  - Myoclonus [Unknown]
  - Osteoarthritis [Unknown]
  - Blood triglycerides increased [Unknown]
  - Microalbuminuria [Unknown]
  - Peripheral vascular disorder [Unknown]
  - Depression [Unknown]
  - Drug hypersensitivity [Unknown]
  - Back pain [Unknown]
  - Diabetic neuropathy [Unknown]
  - Hyperlipidaemia [Unknown]
  - Emphysema [Unknown]
